FAERS Safety Report 15461005 (Version 1)
Quarter: 2018Q4

REPORT INFORMATION
  Report Type: Spontaneous
  Country: US (occurrence: US)
  Receive Date: 20181003
  Receipt Date: 20181003
  Transmission Date: 20190204
  Serious: No
  Sender: FDA-Public Use
  Company Number: US-PERRIGO-18US005147

PATIENT
  Age: 79 Year
  Sex: Male
  Weight: 73.47 kg

DRUGS (2)
  1. IMIQUIMOD. [Suspect]
     Active Substance: IMIQUIMOD
     Dosage: SMALL AMOUNT, EVERY 4 DAYS
     Route: 061
     Dates: start: 201804, end: 201804
  2. IMIQUIMOD. [Suspect]
     Active Substance: IMIQUIMOD
     Indication: ACTINIC KERATOSIS
     Dosage: SMALL AMOUNT, EVERY 4 DAYS
     Route: 061

REACTIONS (1)
  - Application site ulcer [Not Recovered/Not Resolved]
